FAERS Safety Report 17678874 (Version 3)
Quarter: 2020Q2

REPORT INFORMATION
  Report Type: Report from Study
  Country: FR (occurrence: FR)
  Receive Date: 20200417
  Receipt Date: 20200515
  Transmission Date: 20200714
  Serious: Yes (Life-Threatening, Other)
  Sender: FDA-Public Use
  Company Number: FR-ADVANZ PHARMA-202004002607

PATIENT

DRUGS (5)
  1. FUROSEMIDE. [Concomitant]
     Active Substance: FUROSEMIDE
     Indication: FLUID OVERLOAD
     Dosage: UNK
     Dates: start: 20200326, end: 20200330
  2. NOREPINEPHRINE. [Concomitant]
     Active Substance: NOREPINEPHRINE
     Indication: PAIN MANAGEMENT
     Dosage: UNK
     Dates: start: 20200324
  3. INSULIN [Concomitant]
     Active Substance: INSULIN NOS
     Indication: HYPERTRIGLYCERIDAEMIA
     Dosage: UNK
     Dates: start: 20200324
  4. HEPARIN [Concomitant]
     Active Substance: HEPARIN SODIUM
     Indication: PULMONARY EMBOLISM
     Dosage: UNK
     Dates: start: 20200324
  5. HYDROXYCHLOROQUINE [Suspect]
     Active Substance: HYDROXYCHLOROQUINE
     Indication: COVID-19
     Dosage: 400 MG, QD (FILM-COATED TABLET)
     Dates: start: 20200327, end: 20200405

REACTIONS (9)
  - Catheter bacteraemia [Recovered/Resolved]
  - Pneumonia bacterial [Recovering/Resolving]
  - Acute respiratory distress syndrome [Not Recovered/Not Resolved]
  - Off label use [Unknown]
  - Renal failure [Not Recovered/Not Resolved]
  - Pneumomediastinum [Not Recovered/Not Resolved]
  - Pneumonia bacterial [Recovered/Resolved]
  - Shock haemorrhagic [Recovered/Resolved]
  - Bronchopulmonary aspergillosis [Not Recovered/Not Resolved]

NARRATIVE: CASE EVENT DATE: 20200327
